FAERS Safety Report 5799604-3 (Version None)
Quarter: 2008Q3

REPORT INFORMATION
  Report Type: 
  Country: None (occurrence: None)
  Receive Date: 20080703
  Receipt Date: 20080625
  Transmission Date: 20090109
  Serious: Yes (Other)
  Sender: FDA-Public Use
  Company Number: PHHY2008JP08410

PATIENT

DRUGS (1)
  1. RITALIN [Suspect]
     Indication: DEPRESSION
     Route: 048

REACTIONS (5)
  - DECREASED APPETITE [None]
  - DEPRESSION [None]
  - FEELING ABNORMAL [None]
  - LISTLESS [None]
  - WITHDRAWAL SYNDROME [None]
